FAERS Safety Report 17490015 (Version 1)
Quarter: 2020Q1

REPORT INFORMATION
  Report Type: Spontaneous
  Country: US (occurrence: US)
  Receive Date: 20200303
  Receipt Date: 20200303
  Transmission Date: 20200409
  Serious: No
  Sender: FDA-Public Use
  Company Number: US-AKORN PHARMACEUTICALS-2019AKN02055

PATIENT
  Age: 36 Year
  Sex: Female
  Weight: 89.8 kg

DRUGS (3)
  1. MYORISAN [Suspect]
     Active Substance: ISOTRETINOIN
     Dosage: 120 MG, 1X/DAY
     Dates: start: 2019, end: 2019
  2. MYORISAN [Suspect]
     Active Substance: ISOTRETINOIN
     Indication: HIDRADENITIS
     Dosage: 40 MG, 1X/DAY
     Dates: start: 20190606, end: 2019
  3. MYORISAN [Suspect]
     Active Substance: ISOTRETINOIN
     Dosage: 80 MG, 1X/DAY
     Dates: start: 2019, end: 2019

REACTIONS (6)
  - Lip dry [Recovering/Resolving]
  - Off label use [Recovered/Resolved]
  - Nasal dryness [Recovering/Resolving]
  - Product use in unapproved indication [Recovered/Resolved]
  - Rhinalgia [Recovering/Resolving]
  - Lip haemorrhage [Recovering/Resolving]

NARRATIVE: CASE EVENT DATE: 2019
